FAERS Safety Report 5353360-1 (Version None)
Quarter: 2007Q2

REPORT INFORMATION
  Report Type: 
  Country: None (occurrence: None)
  Receive Date: 20070518
  Receipt Date: 20070323
  Transmission Date: 20071010
  Serious: No
  Sender: FDA-Public Use
  Company Number: TPA2007A00679

PATIENT
  Age: 51 Year
  Sex: Male
  Weight: 78.0187 kg

DRUGS (3)
  1. ROZEREM [Suspect]
     Indication: INSOMNIA
     Dosage: 8 MG, HS, PER ORAL
     Route: 048
     Dates: start: 20070322
  2. DILANTIN [Concomitant]
  3. ETODOLAC [Concomitant]

REACTIONS (2)
  - HANGOVER [None]
  - HEADACHE [None]
